FAERS Safety Report 20580954 (Version 1)
Quarter: 2022Q1

REPORT INFORMATION
  Report Type: Spontaneous
  Country: CH (occurrence: CH)
  Receive Date: 20220311
  Receipt Date: 20220311
  Transmission Date: 20220423
  Serious: Yes (Congenital Anomaly, Other)
  Sender: FDA-Public Use
  Company Number: CH-ABBVIE-22K-151-4311058-00

PATIENT
  Sex: Female

DRUGS (11)
  1. VALPROATE SODIUM [Suspect]
     Active Substance: VALPROATE SODIUM
     Indication: Maternal exposure timing unspecified
     Route: 064
  2. LORAZEPAM [Suspect]
     Active Substance: LORAZEPAM
     Indication: Maternal exposure timing unspecified
     Route: 064
  3. ECONAZOLE NITRATE [Suspect]
     Active Substance: ECONAZOLE NITRATE
     Indication: Maternal exposure timing unspecified
     Route: 064
  4. BUSPIRONE HYDROCHLORIDE [Suspect]
     Active Substance: BUSPIRONE HYDROCHLORIDE
     Indication: Maternal exposure timing unspecified
     Route: 064
  5. TRAZODONE [Suspect]
     Active Substance: TRAZODONE HYDROCHLORIDE
     Indication: Maternal exposure timing unspecified
     Route: 064
  6. ATENOLOL [Suspect]
     Active Substance: ATENOLOL
     Indication: Maternal exposure timing unspecified
     Route: 064
  7. REMERON [Suspect]
     Active Substance: MIRTAZAPINE
     Indication: Maternal exposure timing unspecified
     Route: 064
  8. VALIUM [Suspect]
     Active Substance: DIAZEPAM
     Indication: Maternal exposure timing unspecified
     Route: 064
  9. AMOXICILLIN\CLAVULANATE POTASSIUM [Suspect]
     Active Substance: AMOXICILLIN\CLAVULANATE POTASSIUM
     Indication: Maternal exposure timing unspecified
     Route: 064
  10. HALDOL [Suspect]
     Active Substance: HALOPERIDOL
     Indication: Maternal exposure timing unspecified
     Route: 064
  11. PIPAMPERONE [Suspect]
     Active Substance: PIPAMPERONE
     Indication: Maternal exposure timing unspecified
     Route: 064

REACTIONS (4)
  - Hydrocephalus [Not Recovered/Not Resolved]
  - Meningomyelocele [Not Recovered/Not Resolved]
  - Developmental delay [Not Recovered/Not Resolved]
  - Foetal exposure during pregnancy [Unknown]
